FAERS Safety Report 25504577 (Version 1)
Quarter: 2025Q3

REPORT INFORMATION
  Report Type: Spontaneous
  Country: US (occurrence: None)
  Receive Date: 20250701
  Receipt Date: 20250701
  Transmission Date: 20251021
  Serious: Yes (Hospitalization)
  Sender: FDA-CTU
  Company Number: None

PATIENT
  Age: 61 Year
  Sex: Female
  Weight: 75.15 kg

DRUGS (3)
  1. INFLIXIMAB [Suspect]
     Active Substance: INFLIXIMAB
     Indication: Colitis ulcerative
     Route: 041
     Dates: start: 20250602, end: 20250619
  2. STELARA [Suspect]
     Active Substance: USTEKINUMAB
  3. EPINEPHRINE [Suspect]
     Active Substance: EPINEPHRINE

REACTIONS (10)
  - Incorrect route of product administration [None]
  - Mental status changes [None]
  - Ear pruritus [None]
  - Chest pain [None]
  - Throat tightness [None]
  - Skin burning sensation [None]
  - Headache [None]
  - Amnesia [None]
  - Troponin increased [None]
  - Infusion related reaction [None]

NARRATIVE: CASE EVENT DATE: 20250619
